FAERS Safety Report 17673386 (Version 3)
Quarter: 2020Q3

REPORT INFORMATION
  Report Type: Report from Study
  Country: US (occurrence: US)
  Receive Date: 20200415
  Receipt Date: 20200723
  Transmission Date: 20201102
  Serious: Yes (Hospitalization, Other)
  Sender: FDA-Public Use
  Company Number: US-GLAXOSMITHKLINE-US2020AMR045533

PATIENT
  Sex: Female

DRUGS (3)
  1. NIRAPARIB [Suspect]
     Active Substance: NIRAPARIB
     Dosage: 200 MG, DAILY
     Dates: start: 20200309, end: 20200403
  2. NIRAPARIB [Suspect]
     Active Substance: NIRAPARIB
     Dosage: 200 MG, QD
  3. NIRAPARIB [Suspect]
     Active Substance: NIRAPARIB
     Indication: MALIGNANT PERITONEAL NEOPLASM
     Dosage: 200 MG, QD
     Dates: start: 202001

REACTIONS (11)
  - Pustule [Unknown]
  - Rash [Unknown]
  - Skin abrasion [Unknown]
  - Intestinal obstruction [Recovered/Resolved]
  - Urinary tract infection [Unknown]
  - Carbohydrate antigen 125 increased [Recovering/Resolving]
  - Hospice care [Unknown]
  - Scar [Unknown]
  - Gastrostomy [Unknown]
  - Cancer in remission [Unknown]
  - Off label use [Unknown]
